FAERS Safety Report 14317017 (Version 1)
Quarter: 2017Q4

REPORT INFORMATION
  Report Type: Spontaneous
  Country: CN (occurrence: CN)
  Receive Date: 20171222
  Receipt Date: 20171222
  Transmission Date: 20180321
  Serious: Yes (Hospitalization)
  Sender: FDA-Public Use
  Company Number: PHHY2017CN187699

PATIENT
  Age: 7 Month

DRUGS (3)
  1. TRILEPTAL [Suspect]
     Active Substance: OXCARBAZEPINE
     Dosage: 1.0 ML, UNK
     Route: 048
  2. IRON [Concomitant]
     Active Substance: IRON
     Indication: IRON DEFICIENCY ANAEMIA
  3. TRILEPTAL [Suspect]
     Active Substance: OXCARBAZEPINE
     Indication: EPILEPSY
     Dosage: 0.7 ML, BID
     Route: 048
     Dates: start: 201710

REACTIONS (6)
  - Incorrect dose administered [Unknown]
  - Epilepsy [Recovered/Resolved]
  - Drug level decreased [Unknown]
  - Vomiting [Unknown]
  - Nasopharyngitis [Unknown]
  - Off label use [Unknown]
